FAERS Safety Report 4690067-8 (Version None)
Quarter: 2005Q2

REPORT INFORMATION
  Report Type: 
  Country: None (occurrence: None)
  Receive Date: 20050614
  Receipt Date: 20050603
  Transmission Date: 20051028
  Serious: Yes (Other)
  Sender: FDA-Public Use
  Company Number: 2005AD000048

PATIENT
  Age: 69 Year
  Sex: Male
  Weight: 96.6162 kg

DRUGS (4)
  1. CEPHALEXIN [Suspect]
     Indication: INFECTION
     Dosage: 250 MG
     Route: 048
     Dates: start: 20050502
  2. CLOPIDOGREL BISULFATE [Concomitant]
  3. FELODIPINE [Concomitant]
  4. LOSARTAN [Concomitant]

REACTIONS (2)
  - DERMATITIS EXFOLIATIVE [None]
  - PRURITUS [None]
